FAERS Safety Report 19562939 (Version 1)
Quarter: 2021Q3

REPORT INFORMATION
  Report Type: Spontaneous
  Country: US (occurrence: US)
  Receive Date: 20210714
  Receipt Date: 20210714
  Transmission Date: 20211014
  Serious: No
  Sender: FDA-Public Use
  Company Number: US-MYLANLABS-2021M1034974

PATIENT
  Sex: Female
  Weight: 58 kg

DRUGS (1)
  1. ESTRADIOL TRANSDERMAL SYSTEM [Suspect]
     Active Substance: ESTRADIOL
     Indication: HORMONE REPLACEMENT THERAPY
     Dosage: 0.025 MILLIGRAM, BIWEEKLY, TWICE WEEKLY
     Route: 062

REACTIONS (1)
  - Wrong technique in product usage process [Not Recovered/Not Resolved]
